FAERS Safety Report 20543716 (Version 2)
Quarter: 2022Q2

REPORT INFORMATION
  Report Type: Spontaneous
  Country: SE (occurrence: SE)
  Receive Date: 20220303
  Receipt Date: 20220506
  Transmission Date: 20220721
  Serious: Yes (Hospitalization, Other)
  Sender: FDA-Public Use
  Company Number: SE-ARISTO PHARMA-LAMO202202031

PATIENT
  Age: 38 Year
  Sex: Male

DRUGS (2)
  1. LAMOTRIGINE [Suspect]
     Active Substance: LAMOTRIGINE
     Indication: Depression
     Dosage: 200 MILLIGRAM, ONCE A DAY (IN 6 WEEKS)
     Route: 065
  2. ASENAPINE [Concomitant]
     Active Substance: ASENAPINE
     Indication: Depression
     Dosage: UNK
     Route: 065

REACTIONS (2)
  - Mania [Recovered/Resolved]
  - Psychotic symptom [Recovered/Resolved]
